FAERS Safety Report 8573207 (Version 2)
Quarter: 2013Q3

REPORT INFORMATION
  Report Type: Spontaneous
  Country: US (occurrence: US)
  Receive Date: 20120522
  Receipt Date: 20130830
  Transmission Date: 20140515
  Serious: Yes (Other)
  Sender: FDA-Public Use
  Company Number: US-UCBSA-057425

PATIENT
  Sex: Female

DRUGS (1)
  1. CIMZIA [Suspect]
     Indication: CROHN^S DISEASE
     Dates: start: 2011, end: 2012

REACTIONS (2)
  - Gastrointestinal stromal tumour [Recovered/Resolved]
  - Crohn^s disease [Not Recovered/Not Resolved]
